FAERS Safety Report 16600557 (Version 2)
Quarter: 2019Q3

REPORT INFORMATION
  Report Type: Spontaneous
  Country: ES (occurrence: ES)
  Receive Date: 20190719
  Receipt Date: 20190725
  Transmission Date: 20191004
  Serious: Yes (Other)
  Sender: FDA-Public Use
  Company Number: PHHY2019ES163890

PATIENT
  Age: 33 Year
  Sex: Female
  Weight: 60 kg

DRUGS (4)
  1. METHYLPREDNISOLONE. [Suspect]
     Active Substance: METHYLPREDNISOLONE
     Indication: MULTIPLE SCLEROSIS
     Dosage: 1 G, QD (HIGH-DOSE )
     Route: 040
  2. METHYLPREDNISOLONE. [Suspect]
     Active Substance: METHYLPREDNISOLONE
     Dosage: 1 G, QD
     Route: 042
  3. PREDNISONE. [Suspect]
     Active Substance: PREDNISONE
     Indication: MULTIPLE SCLEROSIS
     Dosage: UNK
     Route: 048
  4. METHYLPREDNISOLONE. [Suspect]
     Active Substance: METHYLPREDNISOLONE
     Dosage: 1 G, QD
     Route: 042
     Dates: start: 20110707, end: 201107

REACTIONS (7)
  - Hepatitis [Recovered/Resolved]
  - Hepatotoxicity [Recovered/Resolved]
  - Pruritus [Recovered/Resolved]
  - Hepatocellular injury [Recovered/Resolved]
  - Jaundice [Recovered/Resolved]
  - Drug-induced liver injury [Recovered/Resolved]
  - Multiple sclerosis relapse [Unknown]

NARRATIVE: CASE EVENT DATE: 201108
